FAERS Safety Report 16306353 (Version 1)
Quarter: 2019Q2

REPORT INFORMATION
  Report Type: Spontaneous
  Country: US (occurrence: US)
  Receive Date: 20190405
  Receipt Date: 20190405
  Transmission Date: 20190711
  Serious: Yes (Life-Threatening, Disabling, Other)
  Sender: FDA-Public Use
  Company Number: None

PATIENT
  Age: 81 Year
  Sex: Male
  Weight: 92.99 kg

DRUGS (10)
  1. FISH OIL [Concomitant]
     Active Substance: FISH OIL
  2. VITAMIN/MINERAL COMPLEX [Concomitant]
  3. LEXISCAN [Suspect]
     Active Substance: REGADENOSON
     Indication: CARDIAC STRESS TEST
     Dates: start: 20181004, end: 20181004
  4. IBUPROFEN. [Concomitant]
     Active Substance: IBUPROFEN
  5. METROPROLOL [Concomitant]
     Active Substance: METOPROLOL
  6. FLUCANAZOL [Concomitant]
  7. COQ10 LIQUID [Concomitant]
  8. PROBIOTIC [Concomitant]
     Active Substance: PROBIOTICS NOS
  9. VIT D [Concomitant]
     Active Substance: VITAMIN D NOS
  10. MAGNESIUM OXIDE. [Concomitant]
     Active Substance: MAGNESIUM OXIDE

REACTIONS (3)
  - Heart rate increased [None]
  - Hypersomnia [None]
  - Heart rate decreased [None]

NARRATIVE: CASE EVENT DATE: 20181004
